FAERS Safety Report 15681278 (Version 7)
Quarter: 2019Q4

REPORT INFORMATION
  Report Type: Report from Study
  Country: US (occurrence: US)
  Receive Date: 20181203
  Receipt Date: 20191220
  Transmission Date: 20200122
  Serious: Yes (Other)
  Sender: FDA-Public Use
  Company Number: US-SA-2018SA154700

PATIENT
  Age: 58 Year
  Sex: Female

DRUGS (7)
  1. TERIFLUNOMIDE. [Suspect]
     Active Substance: TERIFLUNOMIDE
     Dosage: 14 MG, QD
     Route: 048
     Dates: start: 20180620, end: 201911
  2. TECFIDERA [Concomitant]
     Active Substance: DIMETHYL FUMARATE
  3. TERIFLUNOMIDE. [Suspect]
     Active Substance: TERIFLUNOMIDE
     Dosage: 14 MG, QD
     Route: 048
     Dates: start: 2019
  4. TERIFLUNOMIDE. [Suspect]
     Active Substance: TERIFLUNOMIDE
     Indication: MULTIPLE SCLEROSIS
     Dosage: 7 MG, QD
     Route: 048
     Dates: start: 20180522, end: 20190619
  5. LIPITOR [Concomitant]
     Active Substance: ATORVASTATIN CALCIUM
  6. SINGULAIR [Concomitant]
     Active Substance: MONTELUKAST SODIUM
  7. TERIFLUNOMIDE. [Suspect]
     Active Substance: TERIFLUNOMIDE
     Dosage: 2 DF
     Route: 048
     Dates: start: 2019, end: 2019

REACTIONS (23)
  - Extra dose administered [Unknown]
  - Cognitive disorder [Not Recovered/Not Resolved]
  - Cartilage injury [Unknown]
  - Gastroenteritis viral [Unknown]
  - Migraine [Unknown]
  - Memory impairment [Not Recovered/Not Resolved]
  - Musculoskeletal discomfort [Unknown]
  - Alopecia [Not Recovered/Not Resolved]
  - Bladder disorder [Unknown]
  - Vomiting [Unknown]
  - Sudden onset of sleep [Not Recovered/Not Resolved]
  - Gastrointestinal disorder [Unknown]
  - Vitamin C deficiency [Unknown]
  - Joint dislocation [Unknown]
  - Fatigue [Recovered/Resolved]
  - Fatigue [Not Recovered/Not Resolved]
  - Stress [Unknown]
  - Intervertebral disc protrusion [Unknown]
  - Arthritis [Not Recovered/Not Resolved]
  - Discomfort [Unknown]
  - Fall [Unknown]
  - Headache [Unknown]
  - Fine motor skill dysfunction [Not Recovered/Not Resolved]

NARRATIVE: CASE EVENT DATE: 2018
